FAERS Safety Report 7314860-8 (Version None)
Quarter: 2011Q1

REPORT INFORMATION
  Report Type: 
  Country: None (occurrence: None)
  Receive Date: 20110225
  Receipt Date: 20100111
  Transmission Date: 20110831
  Serious: No
  Sender: FDA-Public Use
  Company Number: US-MYLANLABS-2010S1000393

PATIENT
  Age: 15 Year
  Sex: Male

DRUGS (6)
  1. CLARAVIS [Suspect]
     Indication: ACNE
     Route: 048
     Dates: start: 20101001, end: 20101001
  2. CLARAVIS [Suspect]
     Route: 048
     Dates: start: 20101001
  3. AMNESTEEM [Suspect]
     Indication: ACNE
     Route: 048
     Dates: end: 20100101
  4. AMNESTEEM [Suspect]
     Route: 048
     Dates: end: 20100101
  5. ANTI-ACNE PREPARATIONS FOR TOPICAL USE [Concomitant]
  6. CLARAVIS [Suspect]
     Route: 048
     Dates: start: 20101001

REACTIONS (1)
  - FLAT AFFECT [None]
